FAERS Safety Report 8010306-5 (Version None)
Quarter: 2011Q4

REPORT INFORMATION
  Report Type: 
  Country: None (occurrence: None)
  Receive Date: 20111228
  Receipt Date: 20111220
  Transmission Date: 20120403
  Serious: Yes (Hospitalization)
  Sender: FDA-Public Use
  Company Number: JP-EISAI INC-E7389-01761-SPO-JP

PATIENT
  Age: 50 Year
  Sex: Female
  Weight: 49 kg

DRUGS (1)
  1. HALAVEN [Suspect]
     Indication: BREAST CANCER RECURRENT
     Route: 041
     Dates: start: 20111026, end: 20111102

REACTIONS (1)
  - INTERSTITIAL LUNG DISEASE [None]
